FAERS Safety Report 8118567 (Version 2)
Quarter: 2014Q2

REPORT INFORMATION
  Report Type: Report from Study
  Country: US (occurrence: US)
  Receive Date: 20110902
  Receipt Date: 20140509
  Transmission Date: 20141212
  Serious: No
  Sender: FDA-Public Use
  Company Number: US-ASTRAZENECA-2010SE15881

PATIENT
  Age: 57 Year
  Sex: Female

DRUGS (4)
  1. NEXIUM [Suspect]
     Route: 048
  2. RHINOCORT AQUA [Suspect]
     Route: 045
  3. SEROQUEL XR [Suspect]
     Route: 048
  4. SEROQUEL XR [Suspect]
     Route: 048

REACTIONS (5)
  - Insomnia [Unknown]
  - Oral candidiasis [Unknown]
  - Musculoskeletal discomfort [Unknown]
  - Sinus disorder [Unknown]
  - Drug dose omission [Recovered/Resolved]
